FAERS Safety Report 4623471-4 (Version None)
Quarter: 2005Q1

REPORT INFORMATION
  Report Type: 
  Country: None (occurrence: None)
  Receive Date: 20050330
  Receipt Date: 20050314
  Transmission Date: 20050727
  Serious: Yes (Life-Threatening, Hospitalization)
  Sender: FDA-Public Use
  Company Number: DSA_26014_2005

PATIENT
  Age: 56 Year
  Sex: Male
  Weight: 74 kg

DRUGS (5)
  1. TEMESTA [Suspect]
     Dosage: 1 MG Q DAY PO
     Route: 048
     Dates: start: 20050207, end: 20050207
  2. ATACAND [Concomitant]
  3. HYDROCHLOROTHIAZIDE [Concomitant]
  4. CITALOPRAM HYDROBROMIDE [Concomitant]
  5. LITHIUM CARBONATE [Concomitant]

REACTIONS (2)
  - AMNESIA [None]
  - SUICIDAL IDEATION [None]
